FAERS Safety Report 4856159-5 (Version None)
Quarter: 2005Q4

REPORT INFORMATION
  Report Type: 
  Country: None (occurrence: None)
  Receive Date: 20051216
  Receipt Date: 20051209
  Transmission Date: 20060501
  Serious: Yes (Hospitalization)
  Sender: FDA-Public Use
  Company Number: US-MERCK-0512USA01748

PATIENT
  Age: 59 Year
  Sex: Male

DRUGS (5)
  1. VYTORIN [Suspect]
     Indication: BLOOD CHOLESTEROL INCREASED
     Route: 048
     Dates: start: 20051129
  2. WARFARIN [Concomitant]
     Route: 065
  3. METOPROLOL [Concomitant]
     Route: 065
  4. AMBIEN [Concomitant]
     Route: 065
  5. ATACAND [Concomitant]
     Route: 065

REACTIONS (2)
  - ABASIA [None]
  - ASTHENIA [None]
